FAERS Safety Report 7889139-6 (Version None)
Quarter: 2011Q4

REPORT INFORMATION
  Report Type: 
  Country: None (occurrence: None)
  Receive Date: 20111101
  Receipt Date: 20111017
  Transmission Date: 20120403
  Serious: Yes (Death, Hospitalization)
  Sender: FDA-Public Use
  Company Number: 2011232007

PATIENT
  Age: 69 Year
  Sex: Male

DRUGS (7)
  1. DEXAMETHASONE [Concomitant]
  2. DALTEPARIN SODIUM [Suspect]
     Indication: LUNG NEOPLASM MALIGNANT
     Dates: start: 20110601
  3. ORAMORPH SR [Concomitant]
  4. MORPHINE SULFATE [Concomitant]
  5. LIDOCAINE [Concomitant]
  6. CYCLIZINE (CYCLIZINE) [Concomitant]
  7. DIAZEPAM [Concomitant]

REACTIONS (11)
  - DECREASED APPETITE [None]
  - RESPIRATORY DISTRESS [None]
  - GENERAL PHYSICAL HEALTH DETERIORATION [None]
  - SOMNOLENCE [None]
  - CEREBRAL INFARCTION [None]
  - RESPIRATORY TRACT INFECTION [None]
  - TACHYCARDIA [None]
  - DYSPHAGIA [None]
  - BRONCHOPNEUMONIA [None]
  - CONFUSIONAL STATE [None]
  - PULMONARY OEDEMA [None]
